FAERS Safety Report 25342439 (Version 2)
Quarter: 2025Q3

REPORT INFORMATION
  Report Type: Spontaneous
  Country: US (occurrence: US)
  Receive Date: 20250521
  Receipt Date: 20250820
  Transmission Date: 20251021
  Serious: No
  Sender: CATALYST PHARMA
  Company Number: US-CATALYST PHARMACEUTICALS-US-CATA-25-00238

PATIENT
  Age: 17 Year
  Sex: Male
  Weight: 48.39 kg

DRUGS (3)
  1. AGAMREE [Suspect]
     Active Substance: VAMOROLONE
     Indication: Duchenne muscular dystrophy
     Dosage: 6 ML ONCE DAILY
     Route: 048
     Dates: start: 20240622, end: 20250209
  2. AGAMREE [Suspect]
     Active Substance: VAMOROLONE
     Dosage: 6 ML ONCE DAILY
     Route: 048
     Dates: start: 20250211
  3. VITAMIN D3 [Concomitant]
     Active Substance: CHOLECALCIFEROL
     Indication: Hypovitaminosis
     Dosage: 1000 UNITS ONCE A DAY
     Route: 065

REACTIONS (2)
  - Pyrexia [Recovered/Resolved]
  - Product dose omission issue [Unknown]

NARRATIVE: CASE EVENT DATE: 20250209
